FAERS Safety Report 5379976-4 (Version None)
Quarter: 2007Q2

REPORT INFORMATION
  Report Type: 
  Country: None (occurrence: None)
  Receive Date: 20070530
  Receipt Date: 20070305
  Transmission Date: 20071010
  Serious: No
  Sender: FDA-Public Use
  Company Number: 2007PV031049

PATIENT
  Age: 36 Year
  Sex: Female
  Weight: 68.4932 kg

DRUGS (2)
  1. BYETTA [Suspect]
     Indication: METABOLIC SYNDROME
     Dosage: 5 MCG; BID; SC : 10 MCG; BID; SC
     Route: 058
     Dates: start: 20050101, end: 20050101
  2. BYETTA [Suspect]
     Indication: METABOLIC SYNDROME
     Dosage: 5 MCG; BID; SC : 10 MCG; BID; SC
     Route: 058
     Dates: start: 20070101

REACTIONS (2)
  - INJECTION SITE HAEMORRHAGE [None]
  - WEIGHT DECREASED [None]
